FAERS Safety Report 8552073 (Version 3)
Quarter: 2012Q4

REPORT INFORMATION
  Report Type: 
  Country: GB (occurrence: GB)
  Receive Date: 20120508
  Receipt Date: 20121204
  Transmission Date: 20130627
  Serious: Yes (Hospitalization, Other)
  Sender: FDA-Public Use
  Company Number: GB-B.I. PHARMACEUTICALS,INC./RIDGEFIELD-2012-UK-00611UK

PATIENT
  Age: 38 Year
  Sex: Female

DRUGS (5)
  1. VIRAMUNE [Suspect]
     Indication: HIV INFECTION
     Dosage: 400 mg
     Route: 048
     Dates: start: 20111115, end: 20120428
  2. KIVEXA [Suspect]
     Indication: HIV INFECTION
     Dosage: 1 anz
     Route: 048
     Dates: start: 200910, end: 20120428
  3. IRON [Concomitant]
     Indication: ANAEMIA
     Dosage: taken ^on/off^
  4. FOLIC ACID [Concomitant]
     Indication: PREGNANCY
  5. CALCEOS [Concomitant]
     Indication: VITAMIN D DEFICIENCY

REACTIONS (2)
  - Anaemia haemolytic autoimmune [Not Recovered/Not Resolved]
  - Exposure during pregnancy [Unknown]
